FAERS Safety Report 5403069-0 (Version None)
Quarter: 2007Q3

REPORT INFORMATION
  Report Type: 
  Country: None (occurrence: None)
  Receive Date: 20070713
  Receipt Date: 20070504
  Transmission Date: 20080115
  Serious: Yes (Hospitalization, Disabling)
  Sender: FDA-Public Use
  Company Number: US-JNJFOC-20061105783

PATIENT
  Age: 37 Year
  Sex: Female
  Weight: 82.1011 kg

DRUGS (7)
  1. ORTHO EVRA [Suspect]
     Indication: CONTRACEPTION
     Dosage: 3 IN 4 WEEK, TRANSDERMAL
     Route: 062
     Dates: start: 20020926, end: 20021012
  2. ALTACE [Concomitant]
  3. PLAQUENIL [Concomitant]
  4. ACTONEL [Concomitant]
  5. PREDNISONE TAB [Concomitant]
  6. ASPIRIN [Concomitant]
  7. TYLENOL W/ CODEINE NO. 3 [Concomitant]

REACTIONS (1)
  - CEREBROVASCULAR ACCIDENT [None]
